FAERS Safety Report 15994224 (Version 1)
Quarter: 2019Q1

REPORT INFORMATION
  Report Type: Spontaneous
  Country: JP (occurrence: JP)
  Receive Date: 20190222
  Receipt Date: 20190222
  Transmission Date: 20190418
  Serious: Yes (Life-Threatening, Hospitalization, Other)
  Sender: FDA-Public Use
  Company Number: JP-BAUSCH-BL-2019-005358

PATIENT
  Age: 46 Year
  Sex: Male

DRUGS (2)
  1. PREDNISOLONE. [Suspect]
     Active Substance: PREDNISOLONE
     Indication: HYPEREOSINOPHILIC SYNDROME
     Route: 048
  2. AZATHIOPRINE. [Suspect]
     Active Substance: AZATHIOPRINE
     Indication: HYPEREOSINOPHILIC SYNDROME
     Route: 048

REACTIONS (6)
  - Herpes zoster disseminated [Recovered/Resolved]
  - Haemophagocytic lymphohistiocytosis [Recovered/Resolved]
  - Blister [Recovered/Resolved]
  - Pharyngotonsillitis [Recovered/Resolved]
  - Oesophagitis [Recovered/Resolved]
  - Herpes simplex [Recovered/Resolved]
